FAERS Safety Report 8179798-5 (Version None)
Quarter: 2012Q1

REPORT INFORMATION
  Report Type: 
  Country: None (occurrence: None)
  Receive Date: 20120229
  Receipt Date: 20120220
  Transmission Date: 20120608
  Serious: Yes (Other)
  Sender: FDA-Public Use
  Company Number: 2012MA001411

PATIENT
  Age: 76 Year
  Sex: Female
  Weight: 61.2356 kg

DRUGS (6)
  1. COUMADIN [Concomitant]
  2. PROCARDIA [Concomitant]
  3. VYTORIN [Concomitant]
  4. NIFEDIPINE [Suspect]
     Indication: HYPERTENSION
     Dosage: 30 MG;QD;PO
     Route: 048
     Dates: start: 20111201, end: 20120125
  5. PLAVIX [Concomitant]
  6. DIGOXIN [Concomitant]

REACTIONS (13)
  - ASTHMA [None]
  - WEIGHT DECREASED [None]
  - SPEECH DISORDER [None]
  - STRESS [None]
  - DEATH OF RELATIVE [None]
  - TRANSIENT ISCHAEMIC ATTACK [None]
  - CONDITION AGGRAVATED [None]
  - CARDIAC FAILURE CONGESTIVE [None]
  - BALANCE DISORDER [None]
  - MIDDLE EAR EFFUSION [None]
  - BLOOD PRESSURE DECREASED [None]
  - DYSPNOEA [None]
  - DIZZINESS [None]
